FAERS Safety Report 7409282-5 (Version None)
Quarter: 2011Q2

REPORT INFORMATION
  Report Type: 
  Country: None (occurrence: None)
  Receive Date: 20110412
  Receipt Date: 20110404
  Transmission Date: 20111010
  Serious: No
  Sender: FDA-Public Use
  Company Number: A0922298A

PATIENT
  Age: 19 Year
  Sex: Female

DRUGS (3)
  1. NEOTIGASON [Suspect]
     Indication: PSORIASIS
     Dosage: 10MG TWICE PER DAY
     Route: 048
     Dates: start: 20081001, end: 20090601
  2. XYZAL [Suspect]
     Route: 065
  3. LORATADINE [Suspect]
     Route: 065

REACTIONS (2)
  - DRUG EXPOSURE BEFORE PREGNANCY [None]
  - DRUG EXPOSURE DURING PREGNANCY [None]
